FAERS Safety Report 9215026 (Version 2)
Quarter: 2013Q2

REPORT INFORMATION
  Report Type: Spontaneous
  Country: DE (occurrence: DE)
  Receive Date: 20130405
  Receipt Date: 20130514
  Transmission Date: 20140414
  Serious: Yes (Hospitalization)
  Sender: FDA-Public Use
  Company Number: DE-ASTRAZENECA-2013SE20405

PATIENT
  Age: 5172 Day
  Sex: Female
  Weight: 48 kg

DRUGS (16)
  1. OMEPRAZOLE BAYER [Suspect]
     Indication: OESOPHAGITIS
     Route: 048
     Dates: start: 201003
  2. SPIRONOLACTON [Suspect]
     Indication: RENAL TRANSPLANT
     Route: 048
     Dates: start: 201111
  3. LASIX [Suspect]
     Indication: RENAL TRANSPLANT
     Dosage: 60-60-60-40
     Route: 048
     Dates: start: 201111
  4. ENALAPRIL [Concomitant]
     Route: 048
  5. PROGRAF [Concomitant]
     Route: 048
  6. PREDNISONE [Concomitant]
     Route: 048
  7. FERRO SANOL [Concomitant]
     Route: 048
  8. LEVOTHYROXINE [Concomitant]
     Route: 048
  9. VIGANTOLETTEN [Concomitant]
     Route: 048
  10. VIGANTOLETTEN [Concomitant]
     Dosage: GENERIC
     Route: 048
  11. BICANORM [Concomitant]
     Route: 048
  12. ATENOLOL [Concomitant]
     Dosage: 100-0-150 MG/D
     Route: 048
  13. AMLODIPINE [Concomitant]
     Route: 048
  14. AZATHIOPRIN [Concomitant]
     Route: 048
  15. NEORECORMON [Concomitant]
     Route: 042
  16. NOVALGIN [Concomitant]
     Dosage: 500 MG DAILY, MEDICATION AS REQUIRED
     Route: 048

REACTIONS (4)
  - Gait disturbance [Unknown]
  - Muscle spasms [Unknown]
  - Pain in extremity [Recovered/Resolved]
  - Hypomagnesaemia [Unknown]
